FAERS Safety Report 6876353-1 (Version None)
Quarter: 2010Q3

REPORT INFORMATION
  Report Type: 
  Country: None (occurrence: None)
  Receive Date: 20100727
  Receipt Date: 20070712
  Transmission Date: 20110219
  Serious: Yes (Hospitalization, Other)
  Sender: FDA-Public Use
  Company Number: US-PFIZER INC-2006111065

PATIENT
  Sex: Female
  Weight: 72.1 kg

DRUGS (5)
  1. CELEBREX [Suspect]
     Indication: RHEUMATOID ARTHRITIS
     Route: 048
     Dates: start: 19990712, end: 19991219
  2. VIOXX [Suspect]
     Indication: RHEUMATOID ARTHRITIS
     Route: 048
     Dates: start: 20000323
  3. FUROSEMIDE [Concomitant]
     Dates: start: 19970101, end: 20040101
  4. ZOCOR [Concomitant]
     Dates: start: 19850101, end: 20040818
  5. PREMARIN [Concomitant]
     Dates: start: 19650101, end: 20040213

REACTIONS (1)
  - MYOCARDIAL INFARCTION [None]
